FAERS Safety Report 24795511 (Version 3)
Quarter: 2025Q1

REPORT INFORMATION
  Report Type: Spontaneous
  Country: JP (occurrence: JP)
  Receive Date: 20241231
  Receipt Date: 20250311
  Transmission Date: 20250408
  Serious: Yes (Other)
  Sender: AMGEN
  Company Number: JP-KYOWAKIRIN-2024KK029000

PATIENT
  Age: 9 Decade
  Sex: Female

DRUGS (4)
  1. DARBEPOETIN ALFA [Suspect]
     Active Substance: DARBEPOETIN ALFA
     Indication: Nephrogenic anaemia
     Route: 040
     Dates: end: 202407
  2. DAPRODUSTAT [Suspect]
     Active Substance: DAPRODUSTAT
     Indication: Nephrogenic anaemia
     Route: 048
     Dates: start: 202407
  3. DAPRODUSTAT [Suspect]
     Active Substance: DAPRODUSTAT
     Route: 048
     Dates: start: 2024
  4. DAPRODUSTAT [Suspect]
     Active Substance: DAPRODUSTAT
     Route: 048

REACTIONS (2)
  - Plasma cell myeloma [Not Recovered/Not Resolved]
  - Fracture [Recovered/Resolved]

NARRATIVE: CASE EVENT DATE: 20241201
